FAERS Safety Report 9404061 (Version 1)
Quarter: 2013Q3

REPORT INFORMATION
  Report Type: Spontaneous
  Country: US (occurrence: None)
  Receive Date: 20130716
  Receipt Date: 20130716
  Transmission Date: 20140515
  Serious: Yes (Other)
  Sender: FDA-Public Use
  Company Number: None

PATIENT
  Age: 58 Year
  Sex: Female
  Weight: 77.11 kg

DRUGS (11)
  1. LUNESTA [Suspect]
     Indication: INSOMNIA
     Route: 048
     Dates: start: 20110817, end: 20130307
  2. CYMBALTA [Concomitant]
  3. WELLBUTRIN XL [Concomitant]
  4. METHYLPHENIDATE [Concomitant]
  5. TRAZODONE [Concomitant]
  6. CLONAZEPAM [Concomitant]
  7. ATORVASTATIN [Concomitant]
  8. ASPIRIN EC [Concomitant]
  9. SLOW FE [Concomitant]
  10. VITAMIN D [Concomitant]
  11. OMEPRAZOLE [Concomitant]

REACTIONS (1)
  - Amnesia [None]
